FAERS Safety Report 5582804-5 (Version None)
Quarter: 2007Q4

REPORT INFORMATION
  Report Type: 
  Country: None (occurrence: None)
  Receive Date: 20071231
  Receipt Date: 20071228
  Transmission Date: 20080405
  Serious: Yes (Death, Hospitalization)
  Sender: FDA-Public Use
  Company Number: 2007SP025306

PATIENT
  Age: 49 Year
  Sex: Male

DRUGS (6)
  1. PEGETRON (PEGINTERFERON ALFA-2B W/RIBAVIRIN) (PEGYLATED INTERFERON ALF [Suspect]
     Indication: HEPATITIS C VIRUS
     Dosage: SC PO
     Route: 058
  2. NEURONTIN [Concomitant]
  3. DILANTIN [Concomitant]
  4. SEROQUEL [Concomitant]
  5. VENTOLIN [Concomitant]
  6. . [Concomitant]

REACTIONS (1)
  - COMA [None]
